FAERS Safety Report 23454093 (Version 1)
Quarter: 2024Q1

REPORT INFORMATION
  Report Type: Spontaneous
  Country: RU (occurrence: RU)
  Receive Date: 20240130
  Receipt Date: 20240130
  Transmission Date: 20240409
  Serious: Yes (Hospitalization, Other)
  Sender: FDA-Public Use
  Company Number: RU-ABBVIE-5614069

PATIENT
  Age: 29 Year
  Sex: Male
  Weight: 60 kg

DRUGS (3)
  1. RINVOQ [Suspect]
     Active Substance: UPADACITINIB
     Indication: Psoriatic arthropathy
     Route: 048
     Dates: start: 202206, end: 20231223
  2. METHOTREXATE [Concomitant]
     Active Substance: METHOTREXATE
     Indication: Psoriatic arthropathy
     Dates: start: 202311
  3. DEXAMETHASONE [Concomitant]
     Active Substance: DEXAMETHASONE
     Indication: Psoriatic arthropathy
     Dates: start: 20231204, end: 20231210

REACTIONS (6)
  - Dermatitis exfoliative generalised [Unknown]
  - Drug ineffective [Recovering/Resolving]
  - Oedema [Unknown]
  - Psoriatic arthropathy [Unknown]
  - Arthropathy [Unknown]
  - Pruritus [Unknown]

NARRATIVE: CASE EVENT DATE: 20220801
